FAERS Safety Report 10423736 (Version 1)
Quarter: 2014Q3

REPORT INFORMATION
  Report Type: Report from Study
  Country: TW (occurrence: TW)
  Receive Date: 20140902
  Receipt Date: 20140902
  Transmission Date: 20150326
  Serious: Yes (Death, Hospitalization)
  Sender: FDA-Public Use
  Company Number: TW-PFIZER INC-2014237951

PATIENT
  Age: 64 Year
  Sex: Male

DRUGS (4)
  1. BEVACIZUMAB [Suspect]
     Active Substance: BEVACIZUMAB
     Indication: COLORECTAL CANCER METASTATIC
     Dosage: 325 MG, CYCLIC (1 IN 2 WK)
     Route: 042
     Dates: start: 20140226, end: 20140508
  2. CALCIUM FOLINATE [Suspect]
     Active Substance: LEUCOVORIN CALCIUM
     Indication: COLORECTAL CANCER METASTATIC
     Dosage: 550 MG, CYCLIC (1 IN 2 WK)
     Route: 042
     Dates: start: 20140214, end: 20140508
  3. IRINOTECAN HCL [Suspect]
     Active Substance: IRINOTECAN HYDROCHLORIDE
     Indication: COLORECTAL CANCER METASTATIC
     Dosage: 250 MG, CYCLIC (1 IN 2 WK)
     Route: 042
     Dates: start: 20140214, end: 20140508
  4. FLUOROURACIL. [Suspect]
     Active Substance: FLUOROURACIL
     Indication: COLORECTAL CANCER METASTATIC
     Dosage: 4010 MG, CYCLIC (1 IN 2 WK)
     Route: 042
     Dates: start: 20140214, end: 20140509

REACTIONS (5)
  - Neutropenia [Recovering/Resolving]
  - Enteritis [Fatal]
  - Neutropenia [Fatal]
  - Jejunal perforation [Fatal]
  - Pyrexia [Recovering/Resolving]

NARRATIVE: CASE EVENT DATE: 20140301
